FAERS Safety Report 5167669-8 (Version None)
Quarter: 2006Q4

REPORT INFORMATION
  Report Type: 
  Country: None (occurrence: None)
  Receive Date: 20061201
  Receipt Date: 20061201
  Transmission Date: 20070319
  Serious: Yes (Other)
  Sender: FDA-Public Use
  Company Number: None

PATIENT
  Sex: Female
  Weight: 72.5755 kg

DRUGS (1)
  1. LEVAQUIN [Suspect]
     Indication: BRONCHITIS
     Dosage: ONE 750 MG TABLET ONE TIME DAILY
     Dates: start: 20061122, end: 20061129

REACTIONS (7)
  - ARTHRALGIA [None]
  - CHILLS [None]
  - FALL [None]
  - HOT FLUSH [None]
  - INSOMNIA [None]
  - JOINT SWELLING [None]
  - SKIN TIGHTNESS [None]
